FAERS Safety Report 10034401 (Version 1)
Quarter: 2014Q1

REPORT INFORMATION
  Report Type: Spontaneous
  Country: US (occurrence: None)
  Receive Date: 20140324
  Receipt Date: 20140324
  Transmission Date: 20141002
  Serious: Yes (Disabling)
  Sender: FDA-Public Use
  Company Number: None

PATIENT
  Age: 87 Year
  Sex: Female

DRUGS (1)
  1. LOSARTAN [Suspect]
     Indication: RENAL DISORDER
     Dosage: BLISTER PK WITH OTHER TABLETS, 2, AT BEDTIME, TAKEN BY MOUTH
     Route: 048

REACTIONS (23)
  - Asthenia [None]
  - Pain [None]
  - Fatigue [None]
  - Insomnia [None]
  - Somnolence [None]
  - Crying [None]
  - Depression [None]
  - Dizziness [None]
  - Pallor [None]
  - Anaemia [None]
  - Anxiety [None]
  - Hyperhidrosis [None]
  - Pain in extremity [None]
  - Vision blurred [None]
  - Gait disturbance [None]
  - Dizziness [None]
  - Ataxia [None]
  - Ecchymosis [None]
  - Hyperkalaemia [None]
  - Hyponatraemia [None]
  - Arthralgia [None]
  - Renal failure [None]
  - Coma [None]
